FAERS Safety Report 18370220 (Version 3)
Quarter: 2020Q4

REPORT INFORMATION
  Report Type: Spontaneous
  Country: US (occurrence: US)
  Receive Date: 20201012
  Receipt Date: 20201209
  Transmission Date: 20210114
  Serious: No
  Sender: FDA-Public Use
  Company Number: US-GLAXOSMITHKLINE-US2020AMR201370

PATIENT
  Sex: Female

DRUGS (3)
  1. ZEJULA [Suspect]
     Active Substance: NIRAPARIB
     Indication: OVARIAN CANCER
     Dosage: 200 MG, QD
     Route: 048
     Dates: start: 20200924
  2. ZEJULA [Suspect]
     Active Substance: NIRAPARIB
     Dosage: UNK,100MG ALT WITH 200MG QOD
     Dates: start: 20201120
  3. ZEJULA [Suspect]
     Active Substance: NIRAPARIB
     Dosage: 100 MG, QD
     Dates: start: 20201029

REACTIONS (6)
  - Platelet count decreased [Unknown]
  - Dyspepsia [Unknown]
  - Poor quality sleep [Recovering/Resolving]
  - Nausea [Recovered/Resolved]
  - Hair growth abnormal [Unknown]
  - Inappropriate schedule of product administration [Unknown]
